FAERS Safety Report 7279746-6 (Version None)
Quarter: 2011Q1

REPORT INFORMATION
  Report Type: 
  Country: None (occurrence: None)
  Receive Date: 20110208
  Receipt Date: 20110127
  Transmission Date: 20110831
  Serious: Yes (Other)
  Sender: FDA-Public Use
  Company Number: PHFR2010GB00499

PATIENT
  Sex: Male

DRUGS (7)
  1. VALPROATE SODIUM [Suspect]
     Dosage: 200 MG, QD
     Route: 048
  2. HYOSCINE HBR HYT [Concomitant]
     Dosage: UNK
     Route: 048
  3. CLOZARIL [Suspect]
     Indication: SCHIZOPHRENIA
     Dosage: 700 MG/DAY
     Route: 048
     Dates: start: 20060220
  4. SENNA [Concomitant]
     Route: 048
  5. VOLTAREN [Concomitant]
     Route: 048
  6. DIAZEPAM [Suspect]
     Dosage: 4.5 MG, QD
     Route: 048
  7. AMISULPRIDE [Suspect]
     Dosage: 1600 MG, QD
     Route: 048

REACTIONS (4)
  - NEUTROPENIA [None]
  - SUBACUTE ENDOCARDITIS [None]
  - WHITE BLOOD CELL COUNT INCREASED [None]
  - EOSINOPHILIA [None]
